FAERS Safety Report 11558786 (Version 1)
Quarter: 2015Q3

REPORT INFORMATION
  Report Type: Spontaneous
  Country: US (occurrence: US)
  Receive Date: 20150928
  Receipt Date: 20150928
  Transmission Date: 20151125
  Serious: No
  Sender: FDA-Public Use
  Company Number: US-009507513-1509USA010213

PATIENT
  Sex: Male

DRUGS (1)
  1. DULERA [Suspect]
     Active Substance: FORMOTEROL FUMARATE DIHYDRATE\MOMETASONE FUROATE
     Dosage: UNK, UNK; 2 EXTRA PUFFS

REACTIONS (4)
  - Cough [Unknown]
  - Product use issue [Unknown]
  - Dyspnoea [Unknown]
  - Overdose [Unknown]
